FAERS Safety Report 25587917 (Version 1)
Quarter: 2025Q3

REPORT INFORMATION
  Report Type: Spontaneous
  Country: US (occurrence: US)
  Receive Date: 20250721
  Receipt Date: 20250721
  Transmission Date: 20251020
  Serious: No
  Sender: ABBVIE
  Company Number: US-ABBVIE-6377841

PATIENT
  Age: 75 Year
  Sex: Female

DRUGS (4)
  1. LEXAPRO [Suspect]
     Active Substance: ESCITALOPRAM OXALATE
     Indication: Depression
     Route: 048
  2. REXULTI [Suspect]
     Active Substance: BREXPIPRAZOLE
     Indication: Major depression
     Route: 065
     Dates: start: 20250516, end: 20250517
  3. REXULTI [Suspect]
     Active Substance: BREXPIPRAZOLE
     Indication: Major depression
     Route: 065
  4. PROPRANOLOL [Concomitant]
     Active Substance: PROPRANOLOL HYDROCHLORIDE
     Indication: Product used for unknown indication

REACTIONS (6)
  - Bradykinesia [Unknown]
  - Tardive dyskinesia [Unknown]
  - Lethargy [Unknown]
  - Feeling abnormal [Unknown]
  - Dysphagia [Unknown]
  - Somnolence [Unknown]

NARRATIVE: CASE EVENT DATE: 20250516
